FAERS Safety Report 26126121 (Version 1)
Quarter: 2025Q4

REPORT INFORMATION
  Report Type: Spontaneous
  Country: AU (occurrence: AU)
  Receive Date: 20251205
  Receipt Date: 20251205
  Transmission Date: 20260117
  Serious: Yes (Other)
  Sender: OTSUKA
  Company Number: AU-MMM-Otsuka-WOF8SDTY

PATIENT

DRUGS (1)
  1. ABILIFY [Suspect]
     Active Substance: ARIPIPRAZOLE
     Indication: Bipolar disorder
     Dosage: 20 MG (FOR OVER A YEAR)

REACTIONS (2)
  - Psychotic symptom [Unknown]
  - Sleeve gastrectomy [Unknown]

NARRATIVE: CASE EVENT DATE: 20251001
